FAERS Safety Report 21945459 (Version 1)
Quarter: 2023Q1

REPORT INFORMATION
  Report Type: Spontaneous
  Country: US (occurrence: US)
  Receive Date: 20230202
  Receipt Date: 20230202
  Transmission Date: 20230417
  Serious: Yes (Other)
  Sender: FDA-Public Use
  Company Number: US-BAXTER-2023BAX011541

PATIENT
  Sex: Male

DRUGS (12)
  1. IFOSFAMIDE [Suspect]
     Active Substance: IFOSFAMIDE
     Indication: Brain sarcoma
     Dosage: FIRST LINE TREATMENT, 6 CYCLES, AS A PART OF ICE CHEMOTHERAPY, STOP DATE: OCT-2021
     Route: 065
  2. IFOSFAMIDE [Suspect]
     Active Substance: IFOSFAMIDE
     Indication: Gene mutation
  3. CYCLOPHOSPHAMIDE [Suspect]
     Active Substance: CYCLOPHOSPHAMIDE
     Indication: Brain sarcoma
     Dosage: UNK
     Route: 065
  4. CYCLOPHOSPHAMIDE [Suspect]
     Active Substance: CYCLOPHOSPHAMIDE
     Indication: Gene mutation
  5. CARBOPLATIN [Suspect]
     Active Substance: CARBOPLATIN
     Indication: Brain sarcoma
     Dosage: FIRST LINE TREATMENT, 6 CYCLES, AS A PART OF ICE CHEMOTHERAPY, STOP DATE: OCT-2021
     Route: 065
  6. CARBOPLATIN [Suspect]
     Active Substance: CARBOPLATIN
     Indication: Gene mutation
  7. ETOPOSIDE [Suspect]
     Active Substance: ETOPOSIDE
     Indication: Brain sarcoma
     Dosage: FIRST LINE TREATMENT, 6 CYCLES, AS A PART OF ICE CHEMOTHERAPY, STOP DATE: OCT-2021
     Route: 065
  8. ETOPOSIDE [Suspect]
     Active Substance: ETOPOSIDE
     Indication: Gene mutation
     Dosage: PALLIATIVE TREATMENT
     Route: 065
  9. VINORELBINE [Suspect]
     Active Substance: VINORELBINE TARTRATE
     Indication: Brain sarcoma
     Dosage: UNK
     Route: 065
  10. VINORELBINE [Suspect]
     Active Substance: VINORELBINE TARTRATE
     Indication: Gene mutation
  11. SIROLIMUS [Suspect]
     Active Substance: SIROLIMUS
     Indication: Brain sarcoma
     Dosage: PALLIATIVE TREATMENT
     Route: 065
  12. SIROLIMUS [Suspect]
     Active Substance: SIROLIMUS
     Indication: Gene mutation

REACTIONS (7)
  - Brain sarcoma [Unknown]
  - Disease recurrence [Unknown]
  - Brain sarcoma [Unknown]
  - Disease recurrence [Unknown]
  - Haemorrhage intracranial [Unknown]
  - Hemiparesis [Unknown]
  - Facial paralysis [Unknown]
